FAERS Safety Report 4715188-2 (Version None)
Quarter: 2005Q3

REPORT INFORMATION
  Report Type: 
  Country: None (occurrence: None)
  Receive Date: 20050715
  Receipt Date: 20050622
  Transmission Date: 20060218
  Serious: Yes (Death)
  Sender: FDA-Public Use
  Company Number: JP-BRACCO-BRO-008760

PATIENT
  Age: 88 Year
  Sex: Female

DRUGS (3)
  1. IOPAMIDOL [Suspect]
     Indication: COMPUTERISED TOMOGRAM
     Route: 042
     Dates: start: 20050614, end: 20050614
  2. TATHION [Concomitant]
     Route: 050
  3. FLUOROMETHOLONE [Concomitant]
     Route: 050

REACTIONS (5)
  - ANAPHYLACTIC SHOCK [None]
  - CARDIAC ARREST [None]
  - DEPRESSED LEVEL OF CONSCIOUSNESS [None]
  - FEELING ABNORMAL [None]
  - RESPIRATORY ARREST [None]
